FAERS Safety Report 6885315-X (Version None)
Quarter: 2010Q3

REPORT INFORMATION
  Report Type: 
  Country: None (occurrence: None)
  Receive Date: 20100729
  Receipt Date: 20100729
  Transmission Date: 20110219
  Serious: Yes (Hospitalization, Disabling, Other)
  Sender: FDA-Public Use
  Company Number: None

PATIENT
  Age: 18 Year
  Sex: Male
  Weight: 68.0396 kg

DRUGS (1)
  1. DILANTIN [Suspect]
     Indication: CONVULSION
     Dosage: 400MG DAILY PO
     Route: 048
     Dates: start: 19850920, end: 20100728

REACTIONS (7)
  - AMNESIA [None]
  - ANXIETY [None]
  - MUSCLE TWITCHING [None]
  - SUICIDAL IDEATION [None]
  - THERAPEUTIC AGENT TOXICITY [None]
  - THINKING ABNORMAL [None]
  - VERTIGO [None]
